FAERS Safety Report 6356065-3 (Version None)
Quarter: 2009Q3

REPORT INFORMATION
  Report Type: 
  Country: None (occurrence: None)
  Receive Date: 20090914
  Receipt Date: 20090914
  Transmission Date: 20100115
  Serious: Yes (Life-Threatening, Hospitalization, Other)
  Sender: FDA-Public Use
  Company Number: None

PATIENT
  Sex: Female
  Weight: 93.8946 kg

DRUGS (1)
  1. LEVETIRACETAM [Suspect]
     Indication: PARTIAL SEIZURES
     Dosage: 750 MG TWICE DAILY PO
     Route: 048
     Dates: start: 20081215, end: 20090221

REACTIONS (5)
  - AMNESIA [None]
  - CONVULSION [None]
  - MYOCARDIAL INFARCTION [None]
  - PARTIAL SEIZURES [None]
  - PRODUCT SUBSTITUTION ISSUE [None]
